FAERS Safety Report 21312300 (Version 1)
Quarter: 2022Q3

REPORT INFORMATION
  Report Type: Spontaneous
  Country: US (occurrence: None)
  Receive Date: 20220909
  Receipt Date: 20220909
  Transmission Date: 20221027
  Serious: No
  Sender: FDA-Public Use
  Company Number: US-ARIS GLOBAL-202205-0915

PATIENT
  Sex: Female

DRUGS (13)
  1. OXERVATE [Suspect]
     Active Substance: CENEGERMIN-BKBJ
     Indication: Neurotrophic keratopathy
     Route: 047
     Dates: start: 20220407
  2. RESTASIS [Concomitant]
     Active Substance: CYCLOSPORINE
  3. ALPHAGAN P [Concomitant]
     Active Substance: BRIMONIDINE TARTRATE
  4. CARVEDILOL [Concomitant]
     Active Substance: CARVEDILOL
  5. SPIRONOLACTONE [Concomitant]
     Active Substance: SPIRONOLACTONE
  6. LEVOTHYROXINE [Concomitant]
     Active Substance: LEVOTHYROXINE
  7. GABAPENTIN [Concomitant]
     Active Substance: GABAPENTIN
  8. DOXYCYCLINE HYCLATE [Concomitant]
     Active Substance: DOXYCYCLINE HYCLATE
  9. VALACYCLOVIR [Concomitant]
     Active Substance: VALACYCLOVIR HYDROCHLORIDE
  10. LUMIGAN [Concomitant]
     Active Substance: BIMATOPROST
  11. MOXIFLOXACIN [Concomitant]
     Active Substance: MOXIFLOXACIN
  12. PRED FORTE [Concomitant]
     Active Substance: PREDNISOLONE ACETATE
     Dosage: DROPS SUSPENSION
  13. SYSTANE (HYPROMELLOSE 2910 (4000 MPA.S)) [Concomitant]
     Active Substance: HYPROMELLOSE 2910 (4000 MPA.S)
     Dosage: 0.3 %-0.4%

REACTIONS (2)
  - Eye pain [Unknown]
  - Eye swelling [Unknown]
